FAERS Safety Report 11801791 (Version 1)
Quarter: 2015Q4

REPORT INFORMATION
  Report Type: Spontaneous
  Country: US (occurrence: US)
  Receive Date: 20151204
  Receipt Date: 20151204
  Transmission Date: 20160305
  Serious: Yes (Other)
  Sender: FDA-Public Use
  Company Number: US-CELGENE-USA-2015116064

PATIENT

DRUGS (3)
  1. POMALYST [Suspect]
     Active Substance: POMALIDOMIDE
     Indication: PLASMA CELL MYELOMA
     Dosage: 4 MILLIGRAM
     Route: 048
  2. OPROZOMIB [Suspect]
     Active Substance: OPROZOMIB
     Indication: PLASMA CELL MYELOMA
     Dosage: 150 MG OR 210 MG
     Route: 048
  3. DEXAMETHASONE. [Suspect]
     Active Substance: DEXAMETHASONE
     Indication: PLASMA CELL MYELOMA
     Route: 048

REACTIONS (23)
  - Pyrexia [Unknown]
  - Constipation [Unknown]
  - Gastritis haemorrhagic [Unknown]
  - Rash pruritic [Unknown]
  - Dyspepsia [Unknown]
  - Upper respiratory tract infection [Unknown]
  - Hypophosphataemia [Unknown]
  - Abdominal distension [Unknown]
  - Anaemia [Unknown]
  - Pneumonia [Unknown]
  - Rash [Unknown]
  - Fatigue [Unknown]
  - Platelet count decreased [Unknown]
  - Neutropenia [Unknown]
  - Hypomagnesaemia [Unknown]
  - Cognitive disorder [Unknown]
  - Back pain [Unknown]
  - Nausea [Unknown]
  - Flatulence [Unknown]
  - Diarrhoea [Unknown]
  - Mucosal inflammation [Unknown]
  - Vomiting [Unknown]
  - Neutrophil count decreased [Unknown]
